FAERS Safety Report 6834346-4 (Version None)
Quarter: 2010Q3

REPORT INFORMATION
  Report Type: 
  Country: None (occurrence: None)
  Receive Date: 20100712
  Receipt Date: 20070417
  Transmission Date: 20110219
  Serious: No
  Sender: FDA-Public Use
  Company Number: US-PFIZER INC-2007031450

PATIENT
  Sex: Female
  Weight: 56.818 kg

DRUGS (8)
  1. CHANTIX [Suspect]
     Indication: SMOKING CESSATION THERAPY
     Dates: start: 20070406, end: 20070415
  2. PROZAC [Concomitant]
  3. DYAZIDE [Concomitant]
  4. FOLTX [Concomitant]
  5. ZYRTEC [Concomitant]
  6. INDERAL [Concomitant]
  7. OXAZEPAM [Concomitant]
  8. ACETYLSALICYLIC ACID [Concomitant]

REACTIONS (1)
  - NAUSEA [None]
